FAERS Safety Report 10258530 (Version 1)
Quarter: 2014Q2

REPORT INFORMATION
  Report Type: Report from Study
  Country: BR (occurrence: BR)
  Receive Date: 20140625
  Receipt Date: 20140625
  Transmission Date: 20141212
  Serious: Yes (Death)
  Sender: FDA-Public Use
  Company Number: BR-AMGEN INC.-BRACT2014047607

PATIENT
  Age: 77 Year
  Sex: Female
  Weight: 72 kg

DRUGS (2)
  1. DENOSUMAB [Suspect]
     Indication: PRODUCT USED FOR UNKNOWN INDICATION
     Dosage: UNK UNK, QD
     Route: 065
     Dates: start: 2012, end: 2012
  2. CELEBRA [Concomitant]
     Dosage: UNK

REACTIONS (5)
  - Pneumonia [Fatal]
  - Septic shock [Fatal]
  - Pancreatitis acute [Fatal]
  - Rheumatoid arthritis [Fatal]
  - Hiatus hernia [Fatal]
